FAERS Safety Report 7743937-8 (Version None)
Quarter: 2011Q3

REPORT INFORMATION
  Report Type: 
  Country: None (occurrence: None)
  Receive Date: 20110912
  Receipt Date: 20110908
  Transmission Date: 20111222
  Serious: No
  Sender: FDA-Public Use
  Company Number: JP-GLAXOSMITHKLINE-B0735826A

PATIENT
  Age: 39 Year
  Sex: Female

DRUGS (3)
  1. ZYPREXA [Concomitant]
     Indication: BIPOLAR I DISORDER
     Dosage: 5MG PER DAY
     Route: 048
  2. LAMICTAL [Suspect]
     Indication: BIPOLAR DISORDER
     Dosage: 50MG PER DAY
     Route: 048
     Dates: start: 20110714, end: 20110725
  3. LITHIUM CARBONATE [Concomitant]
     Indication: BIPOLAR I DISORDER
     Dosage: 400MG PER DAY
     Route: 048

REACTIONS (1)
  - DRUG ERUPTION [None]
